FAERS Safety Report 20326635 (Version 1)
Quarter: 2022Q1

REPORT INFORMATION
  Report Type: Spontaneous
  Country: US (occurrence: US)
  Receive Date: 20220112
  Receipt Date: 20220112
  Transmission Date: 20220424
  Serious: Yes (Death, Hospitalization)
  Sender: FDA-Public Use
  Company Number: US-BAYER-2022A001880

PATIENT
  Age: 82 Year
  Sex: Female

DRUGS (9)
  1. ASPIRIN [Suspect]
     Active Substance: ASPIRIN
     Route: 048
  2. DILTIAZEM [Suspect]
     Active Substance: DILTIAZEM
  3. GLIPIZIDE [Suspect]
     Active Substance: GLIPIZIDE
  4. METOPROLOL [Suspect]
     Active Substance: METOPROLOL
  5. APIXABAN [Suspect]
     Active Substance: APIXABAN
  6. AMLODIPINE [Suspect]
     Active Substance: AMLODIPINE BESYLATE
  7. DULOXETINE [Suspect]
     Active Substance: DULOXETINE
  8. PIOGLITAZONE [Suspect]
     Active Substance: PIOGLITAZONE
  9. POTASSIUM CHLORIDE [Suspect]
     Active Substance: POTASSIUM CHLORIDE

REACTIONS (2)
  - Toxicity to various agents [Fatal]
  - Product administration error [Fatal]
